FAERS Safety Report 13908327 (Version 2)
Quarter: 2017Q4

REPORT INFORMATION
  Report Type: Spontaneous
  Country: FR (occurrence: FR)
  Receive Date: 20170826
  Receipt Date: 20171105
  Transmission Date: 20180320
  Serious: Yes (Hospitalization, Other)
  Sender: FDA-Public Use
  Company Number: FR-ABBVIE-17K-056-2077882-00

PATIENT
  Age: 29 Year
  Sex: Female

DRUGS (7)
  1. ENBREL [Suspect]
     Active Substance: ETANERCEPT
     Indication: RHEUMATIC DISORDER
     Route: 058
     Dates: start: 201512, end: 201512
  2. ETHINYLESTRADIOL/LEVONORGESTREL [Concomitant]
     Active Substance: ETHINYL ESTRADIOL\LEVONORGESTREL
     Indication: PRODUCT USED FOR UNKNOWN INDICATION
  3. ESCITALOPRAM [Concomitant]
     Active Substance: ESCITALOPRAM OXALATE
     Indication: PRODUCT USED FOR UNKNOWN INDICATION
  4. IMODIUM [Concomitant]
     Active Substance: LOPERAMIDE HYDROCHLORIDE
     Indication: PRODUCT USED FOR UNKNOWN INDICATION
  5. HUMIRA [Suspect]
     Active Substance: ADALIMUMAB
     Indication: RHEUMATIC DISORDER
     Route: 058
     Dates: start: 201602, end: 201612
  6. CIMZIA [Suspect]
     Active Substance: CERTOLIZUMAB PEGOL
     Indication: RHEUMATIC DISORDER
     Route: 058
     Dates: start: 201702
  7. BROMAZEPAM [Concomitant]
     Active Substance: BROMAZEPAM
     Indication: PRODUCT USED FOR UNKNOWN INDICATION

REACTIONS (16)
  - Disturbance in attention [Unknown]
  - Cognitive disorder [Unknown]
  - Nervous system disorder [Unknown]
  - Erythema nodosum [Unknown]
  - Asthenia [Unknown]
  - Limbic encephalitis [Unknown]
  - Infection [Unknown]
  - Rheumatic disorder [Unknown]
  - Uveitis [Unknown]
  - Uveitis [Recovered/Resolved]
  - Diarrhoea [Unknown]
  - General physical condition abnormal [Unknown]
  - Gastritis erosive [Unknown]
  - Inflammatory bowel disease [Unknown]
  - Memory impairment [Not Recovered/Not Resolved]
  - White matter lesion [Unknown]

NARRATIVE: CASE EVENT DATE: 201612
